FAERS Safety Report 19824417 (Version 1)
Quarter: 2021Q3

REPORT INFORMATION
  Report Type: Spontaneous
  Country: US (occurrence: US)
  Receive Date: 20210913
  Receipt Date: 20210913
  Transmission Date: 20211014
  Serious: No
  Sender: FDA-Public Use
  Company Number: None

PATIENT
  Age: 71 Year
  Sex: Male
  Weight: 76 kg

DRUGS (2)
  1. KETOROLAC TROMETHAMINE (KETOROLAC TROMETHAMINE 30MG/ML INJ) [Suspect]
     Active Substance: KETOROLAC TROMETHAMINE
     Indication: PAIN
     Route: 042
     Dates: start: 20210711, end: 20210711
  2. ONDANSETRON (ONDANSETRON HCL 2MG/ML INJ,SOLN) [Suspect]
     Active Substance: ONDANSETRON HYDROCHLORIDE
     Indication: NAUSEA
     Route: 042
     Dates: start: 20210711, end: 20210711

REACTIONS (5)
  - Loss of consciousness [None]
  - Rash [None]
  - Hypotension [None]
  - Urticaria [None]
  - Syncope [None]

NARRATIVE: CASE EVENT DATE: 20210711
